FAERS Safety Report 6973075-3 (Version None)
Quarter: 2010Q3

REPORT INFORMATION
  Report Type: 
  Country: None (occurrence: None)
  Receive Date: 20100907
  Receipt Date: 20100826
  Transmission Date: 20110219
  Serious: Yes (Death, Hospitalization)
  Sender: FDA-Public Use
  Company Number: 2010MA002041

PATIENT
  Age: 26 Year
  Sex: Male

DRUGS (3)
  1. CARBAMAZEPINE [Suspect]
     Indication: BIPOLAR DISORDER
  2. HEPARIN [Suspect]
  3. ARGATROBAN [Suspect]

REACTIONS (19)
  - CARDIAC FAILURE [None]
  - COAGULOPATHY [None]
  - DIALYSIS [None]
  - EYE DISORDER [None]
  - GASTROINTESTINAL DISORDER [None]
  - GENERAL PHYSICAL HEALTH DETERIORATION [None]
  - HEPARIN-INDUCED THROMBOCYTOPENIA [None]
  - ILIAC ARTERY OCCLUSION [None]
  - NO THERAPEUTIC RESPONSE [None]
  - PAIN IN EXTREMITY [None]
  - PERIPHERAL ARTERIAL OCCLUSIVE DISEASE [None]
  - PERIPHERAL COLDNESS [None]
  - POOR PERIPHERAL CIRCULATION [None]
  - PULMONARY EMBOLISM [None]
  - PULSE ABSENT [None]
  - RENAL FAILURE [None]
  - RESPIRATORY DISORDER [None]
  - SKIN EXFOLIATION [None]
  - TOXIC EPIDERMAL NECROLYSIS [None]
